FAERS Safety Report 9463556 (Version 1)
Quarter: 2013Q3

REPORT INFORMATION
  Report Type: Spontaneous
  Country: US (occurrence: US)
  Receive Date: 20130819
  Receipt Date: 20130819
  Transmission Date: 20140515
  Serious: No
  Sender: FDA-Public Use
  Company Number: US-009507513-1307USA016282

PATIENT
  Sex: Male

DRUGS (13)
  1. VICTRELIS [Suspect]
     Dosage: TAKE 4 CAPSULES BY MOUTH THREE TIMES A DAY WITH MEALS
     Route: 048
  2. OXCARBAZEPINE [Concomitant]
     Dosage: UNK
     Route: 048
  3. AMLODIPINE [Concomitant]
     Route: 048
  4. HYDROMORPHONE [Concomitant]
  5. LANTUS [Concomitant]
  6. PRILOSEC [Concomitant]
  7. FENTANYL [Concomitant]
  8. GABAPENTIN [Concomitant]
  9. PROMETHAZINE [Concomitant]
  10. NOVOLOG [Concomitant]
  11. METOPROLOL [Concomitant]
     Dosage: 25 MG ER
  12. ASPIRIN [Concomitant]
  13. LATUDA [Concomitant]

REACTIONS (1)
  - Abdominal discomfort [Unknown]
